FAERS Safety Report 4975320-2 (Version None)
Quarter: 2006Q2

REPORT INFORMATION
  Report Type: 
  Country: None (occurrence: None)
  Receive Date: 20060418
  Receipt Date: 20060303
  Transmission Date: 20061013
  Serious: Yes (Life-Threatening, Hospitalization)
  Sender: FDA-Public Use
  Company Number: PHBS2006JP03523

PATIENT
  Age: 77 Year
  Sex: Female

DRUGS (5)
  1. DIOVAN [Suspect]
     Indication: HYPERTENSION
     Dosage: 80 MG/DAY
     Route: 048
     Dates: start: 20051101
  2. CONIEL [Concomitant]
     Route: 048
  3. ALOSENN [Concomitant]
     Route: 048
  4. DEPAS [Concomitant]
     Route: 048
  5. ANTIHYPERTENSIVES [Concomitant]
     Indication: HYPERTENSION

REACTIONS (2)
  - BUNDLE BRANCH BLOCK RIGHT [None]
  - PULMONARY FIBROSIS [None]
